FAERS Safety Report 8616806-9 (Version None)
Quarter: 2012Q3

REPORT INFORMATION
  Report Type: 
  Country: None (occurrence: None)
  Receive Date: 20120823
  Receipt Date: 20120806
  Transmission Date: 20120928
  Serious: No
  Sender: FDA-Public Use
  Company Number: US-009507513-1208USA003347

PATIENT

DRUGS (1)
  1. NASONEX [Suspect]
     Indication: SINUS DISORDER
     Dosage: 4 DF, QD
     Route: 045
     Dates: start: 20120731, end: 20120804

REACTIONS (1)
  - BLOOD URINE [None]
